FAERS Safety Report 7033576-9 (Version None)
Quarter: 2010Q4

REPORT INFORMATION
  Report Type: 
  Country: None (occurrence: None)
  Receive Date: 20101007
  Receipt Date: 20100924
  Transmission Date: 20110411
  Serious: Yes (Hospitalization, Other)
  Sender: FDA-Public Use
  Company Number: PHHY2010FR65922

PATIENT
  Age: 80 Year
  Sex: Female

DRUGS (6)
  1. PARLODEL [Suspect]
     Dosage: 3 DF, UNK
     Route: 048
     Dates: end: 20100601
  2. MODOPAR [Suspect]
     Dosage: 250 MG, UNK
     Route: 048
  3. PROFENID [Suspect]
     Dosage: UNK
     Route: 048
     Dates: start: 20100528, end: 20100529
  4. KARDEGIC [Concomitant]
     Route: 048
  5. METFORMIN HCL [Concomitant]
     Dosage: 500 MG, UNK
     Route: 048
     Dates: end: 20100529
  6. LOVENOX [Concomitant]
     Dosage: UNK
     Route: 058
     Dates: start: 20100528, end: 20100529

REACTIONS (6)
  - ANAEMIA [None]
  - AZOTAEMIA [None]
  - BLOOD CREATINE INCREASED [None]
  - CONFUSIONAL STATE [None]
  - ORTHOSTATIC HYPOTENSION [None]
  - RENAL FAILURE [None]
